FAERS Safety Report 6609511-1 (Version None)
Quarter: 2010Q1

REPORT INFORMATION
  Report Type: 
  Country: None (occurrence: None)
  Receive Date: 20100302
  Receipt Date: 20100222
  Transmission Date: 20100710
  Serious: Yes (Other)
  Sender: FDA-Public Use
  Company Number: JP-JNJFOC-20100210557

PATIENT
  Sex: Male
  Weight: 52 kg

DRUGS (9)
  1. ITRIZOLE [Suspect]
     Indication: DRUG USE FOR UNKNOWN INDICATION
     Route: 042
  2. ITRIZOLE [Suspect]
     Route: 048
  3. SPIRIVA [Concomitant]
     Indication: EMPHYSEMA
     Route: 055
  4. LASIX [Concomitant]
     Indication: CARDIAC FAILURE CONGESTIVE
     Route: 048
  5. FERROMIA [Concomitant]
     Route: 048
  6. ADONA [Concomitant]
     Route: 048
  7. TRANSAMIN [Concomitant]
     Route: 048
  8. FLOMOX [Concomitant]
     Route: 048
  9. LOXOPROFEN [Concomitant]
     Route: 048

REACTIONS (2)
  - CARDIAC FAILURE CONGESTIVE [None]
  - CARDIOMEGALY [None]
